FAERS Safety Report 8593989-0 (Version None)
Quarter: 2012Q3

REPORT INFORMATION
  Report Type: 
  Country: None (occurrence: None)
  Receive Date: 20120814
  Receipt Date: 20120803
  Transmission Date: 20120928
  Serious: Yes (Other)
  Sender: FDA-Public Use
  Company Number: IN-GENZYME-THYM-1003301

PATIENT
  Age: 26 Year
  Sex: Female

DRUGS (3)
  1. MOFILET [Concomitant]
     Indication: PRODUCT USED FOR UNKNOWN INDICATION
     Dosage: 500 MG, TID
     Route: 065
  2. THYMOGLOBULIN [Suspect]
     Indication: IMMUNOSUPPRESSANT DRUG THERAPY
     Dosage: 75 MG, QD X 5 DAYS
     Route: 065
     Dates: start: 20120611, end: 20120615
  3. VINGRAF [Concomitant]
     Indication: PRODUCT USED FOR UNKNOWN INDICATION
     Dosage: 6.5 MG,BID
     Route: 065

REACTIONS (1)
  - BLOOD CREATININE INCREASED [None]
